FAERS Safety Report 6470907-2 (Version None)
Quarter: 2009Q4

REPORT INFORMATION
  Report Type: 
  Country: None (occurrence: None)
  Receive Date: 20091203
  Receipt Date: 20090318
  Transmission Date: 20100525
  Serious: Yes (Death, Hospitalization, Other)
  Sender: FDA-Public Use
  Company Number: GB-ELI_LILLY_AND_COMPANY-GB200801000573

PATIENT
  Sex: Female
  Weight: 37 kg

DRUGS (5)
  1. HUMALOG MIX 75/25 [Suspect]
     Indication: DIABETES MELLITUS
     Dosage: 8 U, 2/D
     Route: 065
     Dates: start: 20071104
  2. HUMALOG MIX 75/25 [Suspect]
     Dosage: 20 U, EACH MORNING
     Route: 065
  3. HUMALOG MIX 75/25 [Suspect]
     Dosage: 10 U, EACH EVENING
     Route: 065
  4. HUMALOG MIX 75/25 [Suspect]
     Dosage: 25 U, GIVEN ONE EVENING INSTEAD OF 8 UNITS
     Route: 065
     Dates: start: 20071109
  5. DEXTROSE [Concomitant]
     Dosage: UNK, UNKNOWN
     Route: 042

REACTIONS (4)
  - BRAIN INJURY [None]
  - DEATH [None]
  - HYPOGLYCAEMIA [None]
  - INCORRECT DOSE ADMINISTERED [None]
